FAERS Safety Report 25759863 (Version 1)
Quarter: 2025Q3

REPORT INFORMATION
  Report Type: Spontaneous
  Country: EU (occurrence: EU)
  Receive Date: 20250904
  Receipt Date: 20250904
  Transmission Date: 20251021
  Serious: Yes (Other)
  Sender: MUNDIPHARMA EDO
  Company Number: EU-SANDOZ-SDZ2024IT055347

PATIENT
  Age: 68 Year
  Sex: Male

DRUGS (6)
  1. REZAFUNGIN ACETATE [Suspect]
     Active Substance: REZAFUNGIN ACETATE
     Indication: Systemic candida
  2. REZAFUNGIN ACETATE [Suspect]
     Active Substance: REZAFUNGIN ACETATE
     Dosage: 200 MG, QW
     Route: 065
  3. VORICONAZOLE [Suspect]
     Active Substance: VORICONAZOLE
     Indication: Systemic candida
     Dosage: 4 MG/KG, Q12H
     Route: 048
     Dates: end: 20230816
  4. ANIDULAFUNGIN [Suspect]
     Active Substance: ANIDULAFUNGIN
     Indication: Systemic candida
     Dosage: 100 MG, QD
  5. ANIDULAFUNGIN [Suspect]
     Active Substance: ANIDULAFUNGIN
     Route: 065
  6. AMPHOTERICIN B [Suspect]
     Active Substance: AMPHOTERICIN B
     Indication: Systemic candida
     Dosage: 10 MG/KG, TID
     Dates: end: 20230816

REACTIONS (5)
  - Hallucination [Recovering/Resolving]
  - Electrocardiogram QT prolonged [Recovering/Resolving]
  - Hypokalaemia [Recovering/Resolving]
  - Insomnia [Recovering/Resolving]
  - Drug intolerance [Unknown]
